FAERS Safety Report 7101293-2 (Version None)
Quarter: 2010Q4

REPORT INFORMATION
  Report Type: 
  Country: None (occurrence: None)
  Receive Date: 20101105
  Receipt Date: 20101029
  Transmission Date: 20110411
  Serious: Yes (Other)
  Sender: FDA-Public Use
  Company Number: DSA_44100_2010

PATIENT
  Sex: Male

DRUGS (2)
  1. XENAZINE [Suspect]
     Indication: TOURETTE'S DISORDER
     Dosage: (25 MG TID ORAL)
     Route: 048
     Dates: start: 20100913
  2. CELEXA [Concomitant]

REACTIONS (14)
  - ANGER [None]
  - DEPRESSION [None]
  - FEELING ABNORMAL [None]
  - FEELING COLD [None]
  - FEELINGS OF WORTHLESSNESS [None]
  - HOT FLUSH [None]
  - INSOMNIA [None]
  - IRRITABILITY [None]
  - LIP SWELLING [None]
  - RASH [None]
  - SOMNOLENCE [None]
  - SUICIDAL IDEATION [None]
  - TARDIVE DYSKINESIA [None]
  - THIRST [None]
